FAERS Safety Report 5336541-2 (Version None)
Quarter: 2007Q2

REPORT INFORMATION
  Report Type: 
  Country: None (occurrence: None)
  Receive Date: 20070524
  Receipt Date: 20070509
  Transmission Date: 20071010
  Serious: Yes (Death, Hospitalization)
  Sender: FDA-Public Use
  Company Number: 2007000857

PATIENT
  Age: 78 Year
  Sex: Male

DRUGS (11)
  1. ERLOTINIB (TABLET) [Suspect]
     Indication: PANCREATIC CARCINOMA METASTATIC
     Dosage: 50 MG QD, ORAL
     Route: 048
     Dates: start: 20060315, end: 20070418
  2. BEVACIZUMAB (INJECTION FOR INFUSION) [Suspect]
     Indication: PANCREATIC CARCINOMA METASTATIC
     Dosage: Q2W, INTRAVENOUS
     Route: 042
     Dates: start: 20060315, end: 20070417
  3. GEMCITABINE [Suspect]
     Indication: PANCREATIC CARCINOMA METASTATIC
     Dosage: 100 MG/WEEK QW, INTRAVENOUS
     Route: 042
     Dates: start: 20060315, end: 20070417
  4. PANTOPRAZOLE SODIUM [Concomitant]
  5. METOPROLOL TARTRATE [Concomitant]
  6. PLAVIX [Concomitant]
  7. SYNTHROID [Concomitant]
  8. LOPERAMIDE HYDROCHLORIDE [Concomitant]
  9. COTAZYM (PANCREATIN) [Concomitant]
  10. VITAMIN B12 [Concomitant]
  11. VITAMIN D [Concomitant]

REACTIONS (2)
  - INTESTINAL INFARCTION [None]
  - MALABSORPTION [None]
